FAERS Safety Report 14816882 (Version 1)
Quarter: 2018Q2

REPORT INFORMATION
  Report Type: Report from Study
  Country: BR (occurrence: BR)
  Receive Date: 20180426
  Receipt Date: 20180426
  Transmission Date: 20180711
  Serious: Yes (Other)
  Sender: FDA-Public Use
  Company Number: BR-JNJFOC-20180431143

PATIENT
  Age: 53 Year
  Sex: Female

DRUGS (2)
  1. REMICADE [Suspect]
     Active Substance: INFLIXIMAB
     Indication: CROHN^S DISEASE
     Route: 042
     Dates: start: 20160105, end: 201701
  2. TAMOXIFEN [Concomitant]
     Active Substance: TAMOXIFEN
     Route: 065

REACTIONS (2)
  - Breast cancer [Recovered/Resolved]
  - Intestinal fistula [Recovered/Resolved]

NARRATIVE: CASE EVENT DATE: 201701
